FAERS Safety Report 10097156 (Version 3)
Quarter: 2014Q2

REPORT INFORMATION
  Report Type: Spontaneous
  Country: ES (occurrence: ES)
  Receive Date: 20140422
  Receipt Date: 20140611
  Transmission Date: 20141212
  Serious: Yes (Other)
  Sender: FDA-Public Use
  Company Number: PHHY2014ES048903

PATIENT
  Age: 54 Year
  Sex: Female

DRUGS (5)
  1. EXTAVIA [Suspect]
     Dosage: UNK UKN, UNK
     Route: 058
  2. EXTAVIA [Suspect]
     Dosage: UNK UKN, (ONLY HALF DOSE)
     Route: 058
  3. AMITRIPTYLINE [Concomitant]
     Indication: SLEEP DISORDER
     Dosage: UNK UKN, UNK
  4. EUTIROX [Concomitant]
     Dosage: 75 MG, UNK
  5. OMEPRAZOLE [Concomitant]
     Dosage: 40 MG, UNK

REACTIONS (10)
  - Dehydration [Recovered/Resolved]
  - Hepatic failure [Unknown]
  - Fluid retention [Recovered/Resolved]
  - Pain [Unknown]
  - Malaise [Unknown]
  - Weight decreased [Unknown]
  - Anger [Unknown]
  - Injection site inflammation [Unknown]
  - Depressed mood [Unknown]
  - Fatigue [Unknown]
